FAERS Safety Report 8842193 (Version 3)
Quarter: 2013Q1

REPORT INFORMATION
  Report Type: Report from Study
  Country: AU (occurrence: AU)
  Receive Date: 20121016
  Receipt Date: 20130304
  Transmission Date: 20140127
  Serious: Yes (Death, Other)
  Sender: FDA-Public Use
  Company Number: PHHY2012AU091346

PATIENT
  Age: 79 Year
  Sex: Male

DRUGS (10)
  1. CLOZARIL [Suspect]
     Dosage: 200 MG,
     Route: 048
     Dates: start: 20080707
  2. VENLAFAXINE [Concomitant]
     Dosage: 225 MG, UNK
  3. QUETIAPINE [Concomitant]
     Dosage: 300 MG, MANE
  4. QUETIAPINE [Concomitant]
     Dosage: 450 MG, NOCTE
  5. SOMAC [Concomitant]
     Dosage: 40 MG, MANE
  6. ATORVASTATIN [Concomitant]
     Dosage: 40 MG, MANE
  7. CLOPIDOGREL [Concomitant]
     Dosage: 75 MG,MANE
  8. SALBUTAMOL [Concomitant]
  9. SERETIDE [Concomitant]
     Dosage: (250/50 2 PUFFS BD)
  10. TIOTROPIUM [Concomitant]
     Dosage: 18 UG, MANE

REACTIONS (5)
  - Death [Fatal]
  - Cardiac disorder [Unknown]
  - Myocardial infarction [Unknown]
  - Blood creatine phosphokinase MB increased [Unknown]
  - Cardiac arrest [Unknown]
